FAERS Safety Report 7991001-5 (Version None)
Quarter: 2011Q4

REPORT INFORMATION
  Report Type: 
  Country: None (occurrence: None)
  Receive Date: 20111219
  Receipt Date: 20111215
  Transmission Date: 20120403
  Serious: Yes (Death)
  Sender: FDA-Public Use
  Company Number: DE-ROCHE-1022684

PATIENT

DRUGS (1)
  1. XELODA [Suspect]
     Indication: GASTRIC CANCER

REACTIONS (1)
  - NEOPLASM MALIGNANT [None]
